FAERS Safety Report 20937211 (Version 1)
Quarter: 2022Q2

REPORT INFORMATION
  Report Type: Spontaneous
  Country: ZA (occurrence: ZA)
  Receive Date: 20220609
  Receipt Date: 20220609
  Transmission Date: 20220720
  Serious: Yes (Hospitalization, Other)
  Sender: FDA-Public Use
  Company Number: ZA-ABBVIE-22K-143-4425518-00

PATIENT
  Age: 52 Year
  Sex: Female

DRUGS (3)
  1. HUMIRA [Suspect]
     Active Substance: ADALIMUMAB
     Indication: Rheumatoid arthritis
     Route: 058
     Dates: start: 20220317, end: 2022
  2. HUMIRA [Suspect]
     Active Substance: ADALIMUMAB
     Route: 058
     Dates: start: 20220401
  3. METHOTREXATE [Concomitant]
     Active Substance: METHOTREXATE
     Indication: Product used for unknown indication

REACTIONS (14)
  - Skin disorder [Unknown]
  - Feeling abnormal [Unknown]
  - Skin induration [Unknown]
  - Skin exfoliation [Unknown]
  - Anal candidiasis [Unknown]
  - Vulvovaginal candidiasis [Unknown]
  - Rash [Unknown]
  - Skin infection [Unknown]
  - Erythema [Unknown]
  - Stevens-Johnson syndrome [Unknown]
  - Eye infection [Unknown]
  - Alopecia [Unknown]
  - Oral candidiasis [Unknown]
  - Gait inability [Unknown]

NARRATIVE: CASE EVENT DATE: 20220101
